APPROVED DRUG PRODUCT: PEDIAMYCIN
Active Ingredient: ERYTHROMYCIN ETHYLSUCCINATE
Strength: EQ 100MG BASE/2.5ML
Dosage Form/Route: SUSPENSION/DROPS;ORAL
Application: A062305 | Product #002
Applicant: ROSS LABORATORIES DIV ABBOTT LABORATORIES INC
Approved: Approved Prior to Jan 1, 1982 | RLD: No | RS: No | Type: DISCN